FAERS Safety Report 9355173 (Version 3)
Quarter: 2014Q1

REPORT INFORMATION
  Report Type: Report from Study
  Country: AR (occurrence: AR)
  Receive Date: 20130619
  Receipt Date: 20140318
  Transmission Date: 20141002
  Serious: Yes (Hospitalization)
  Sender: FDA-Public Use
  Company Number: PHHY2013AR062081

PATIENT
  Age: 67 Year
  Sex: Male

DRUGS (3)
  1. GILENYA [Suspect]
     Indication: MULTIPLE SCLEROSIS
     Dosage: 1 DF, QD
     Route: 048
     Dates: start: 201112
  2. LEVOTHYROXINE [Concomitant]
  3. AMINOPHENAZONE [Concomitant]
     Dosage: UNK UKN, PRN

REACTIONS (1)
  - Hypoglycaemic coma [Recovered/Resolved]
